FAERS Safety Report 7240396-9 (Version None)
Quarter: 2011Q1

REPORT INFORMATION
  Report Type: 
  Country: None (occurrence: None)
  Receive Date: 20110124
  Receipt Date: 20110114
  Transmission Date: 20110831
  Serious: Yes (Hospitalization)
  Sender: FDA-Public Use
  Company Number: US-US-EMD SERONO, INC.-7036359

PATIENT
  Sex: Female

DRUGS (3)
  1. UNSPECIFIED COLD AND FLU TREATMENT [Concomitant]
     Indication: PREMEDICATION
  2. REBIF [Suspect]
     Indication: PRODUCT USED FOR UNKNOWN INDICATION
     Route: 058
     Dates: start: 20041230, end: 20110101
  3. REBIF [Suspect]
     Route: 058
     Dates: start: 20110112

REACTIONS (4)
  - ABDOMINAL DISTENSION [None]
  - ABDOMINAL PAIN [None]
  - INFLUENZA LIKE ILLNESS [None]
  - ABDOMINAL RIGIDITY [None]
